FAERS Safety Report 13385282 (Version 1)
Quarter: 2017Q1

REPORT INFORMATION
  Report Type: Report from Study
  Country: None (occurrence: DE)
  Receive Date: 20170329
  Receipt Date: 20170329
  Transmission Date: 20170429
  Serious: Yes (Hospitalization, Other)
  Sender: FDA-Public Use
  Company Number: DE-ABBVIE-17K-062-1919443-00

PATIENT
  Age: 77 Year
  Sex: Female
  Weight: 70 kg

DRUGS (2)
  1. PREDNISOLON [Concomitant]
     Active Substance: PREDNISOLONE
     Indication: PRODUCT USED FOR UNKNOWN INDICATION
     Route: 048
  2. HUMIRA [Suspect]
     Active Substance: ADALIMUMAB
     Indication: RHEUMATOID ARTHRITIS
     Route: 058
     Dates: start: 20150213

REACTIONS (6)
  - Cerebrovascular accident [Unknown]
  - Rheumatoid nodule [Unknown]
  - Ankle impingement [Unknown]
  - Neoplasm [Unknown]
  - Synovitis [Unknown]
  - Lipoma [Unknown]

NARRATIVE: CASE EVENT DATE: 201603
